FAERS Safety Report 5200410-9 (Version None)
Quarter: 2007Q1

REPORT INFORMATION
  Report Type: 
  Country: None (occurrence: None)
  Receive Date: 20070105
  Receipt Date: 20061226
  Transmission Date: 20070707
  Serious: Yes (Other)
  Sender: FDA-Public Use
  Company Number: FR-PFIZER INC-2007001352

PATIENT
  Age: 50 Year
  Sex: Female

DRUGS (2)
  1. LYRICA [Suspect]
     Indication: SENSATION OF HEAVINESS
  2. SERESTA [Concomitant]

REACTIONS (4)
  - CYANOSIS [None]
  - PARAESTHESIA [None]
  - SENSATION OF HEAVINESS [None]
  - SKIN DISCOLOURATION [None]
